FAERS Safety Report 8485446-7 (Version None)
Quarter: 2012Q3

REPORT INFORMATION
  Report Type: 
  Country: None (occurrence: None)
  Receive Date: 20120703
  Receipt Date: 20120622
  Transmission Date: 20120928
  Serious: Yes (Other)
  Sender: FDA-Public Use
  Company Number: BR-ROCHE-1082001

PATIENT
  Sex: Female
  Weight: 50 kg

DRUGS (9)
  1. METHOTREXATE [Concomitant]
  2. ACETAMINOPHEN [Concomitant]
     Indication: PREMEDICATION
  3. DEXTRAN 70 [Concomitant]
     Route: 047
  4. MABTHERA [Suspect]
     Route: 065
     Dates: start: 20120101
  5. TIMOLOL MALEATE [Concomitant]
     Route: 047
  6. MABTHERA [Suspect]
     Indication: RHEUMATOID ARTHRITIS
     Dates: start: 20090701
  7. MABTHERA [Suspect]
     Route: 065
     Dates: start: 20110801
  8. MABTHERA [Suspect]
     Route: 065
     Dates: start: 20110401
  9. CALCIUM [Concomitant]

REACTIONS (2)
  - FALL [None]
  - UPPER LIMB FRACTURE [None]
